FAERS Safety Report 5866770-0 (Version None)
Quarter: 2008Q3

REPORT INFORMATION
  Report Type: 
  Country: None (occurrence: None)
  Receive Date: 20080828
  Receipt Date: 20080828
  Transmission Date: 20090109
  Serious: No
  Sender: FDA-Public Use
  Company Number: None

PATIENT
  Age: 64 Year
  Sex: Male
  Weight: 102.9665 kg

DRUGS (1)
  1. VIAGRA [Suspect]
     Indication: POSTOPERATIVE CARE
     Dosage: 25 MG DAILY PO
     Route: 048
     Dates: start: 20080118, end: 20080310

REACTIONS (2)
  - DEAFNESS NEUROSENSORY [None]
  - DEAFNESS UNILATERAL [None]
